FAERS Safety Report 14298970 (Version 1)
Quarter: 2017Q4

REPORT INFORMATION
  Report Type: Spontaneous
  Country: US (occurrence: US)
  Receive Date: 20171217
  Receipt Date: 20171217
  Transmission Date: 20180321
  Serious: Yes (Hospitalization, Other)
  Sender: FDA-Public Use
  Company Number: None

PATIENT
  Age: 57 Year
  Sex: Female
  Weight: 94.5 kg

DRUGS (16)
  1. LEMTRADA [Suspect]
     Active Substance: ALEMTUZUMAB
     Indication: MULTIPLE SCLEROSIS
     Dosage: ?          OTHER FREQUENCY:5 DAYS IN A ROW;?
     Route: 042
     Dates: start: 20170911, end: 20170915
  2. DETROL [Concomitant]
     Active Substance: TOLTERODINE TARTRATE
  3. ATIVAN [Concomitant]
     Active Substance: LORAZEPAM
  4. DULARA [Concomitant]
  5. SENOKOT [Concomitant]
     Active Substance: SENNOSIDES
  6. PROBIOTIC [Concomitant]
     Active Substance: PROBIOTICS NOS
  7. AMPYRA [Concomitant]
     Active Substance: DALFAMPRIDINE
  8. ZOFRAN [Concomitant]
     Active Substance: ONDANSETRON HYDROCHLORIDE
  9. PRAVASTATIN. [Concomitant]
     Active Substance: PRAVASTATIN
  10. NEURONTIN [Concomitant]
     Active Substance: GABAPENTIN
  11. PROTONIX [Concomitant]
     Active Substance: PANTOPRAZOLE SODIUM
  12. BACLOFEN. [Concomitant]
     Active Substance: BACLOFEN
  13. PROAIR HFA [Concomitant]
     Active Substance: ALBUTEROL SULFATE
  14. MOTRIN [Concomitant]
     Active Substance: IBUPROFEN
  15. MULTIVITAMIN [Concomitant]
     Active Substance: VITAMINS
  16. MONOLUKAST [Concomitant]

REACTIONS (3)
  - Pulmonary mass [None]
  - Pyrexia [None]
  - Dyspnoea [None]

NARRATIVE: CASE EVENT DATE: 20171025
